FAERS Safety Report 8812415 (Version 3)
Quarter: 2014Q1

REPORT INFORMATION
  Report Type: Report from Study
  Country: US (occurrence: US)
  Receive Date: 20120927
  Receipt Date: 20140213
  Transmission Date: 20141002
  Serious: Yes (Death, Other)
  Sender: FDA-Public Use
  Company Number: US-ALEXION PHARMACEUTICALS INC.-A201201785

PATIENT
  Age: 47 Year
  Sex: Female
  Weight: 143 kg

DRUGS (28)
  1. SOLIRIS [Suspect]
     Indication: HAEMOLYTIC URAEMIC SYNDROME
     Dosage: 900 MG
     Dates: start: 20120831, end: 20120914
  2. CALCIUM CARBONATE [Concomitant]
     Dosage: 600 MG, TID
     Route: 048
  3. TRIGLIDE [Concomitant]
     Dosage: 160 MG, QD
     Route: 048
  4. TAXOL [Concomitant]
     Dosage: UNK
  5. FERROUS SULFATE [Concomitant]
     Dosage: 250 MG, BID
     Route: 048
  6. LEVSIN [Concomitant]
     Dosage: 0.125 MG, TID
     Route: 060
  7. LANTUS [Concomitant]
     Dosage: 20 UT, QD PM
  8. LACTOBACILLUS [Concomitant]
     Dosage: UNK, TID
     Route: 048
  9. LORAZEPAM [Concomitant]
     Dosage: 0.5 MG, BID
     Route: 048
  10. MAGNESIUM OXIDE [Concomitant]
     Dosage: 5 MG, TID
     Route: 048
  11. OMEGA-3 [Concomitant]
     Dosage: UNK, QD
  12. PROTONIX [Concomitant]
     Dosage: 20 MG, BID
     Route: 048
  13. PAXIL [Concomitant]
     Dosage: 10 MG, QD
     Route: 048
  14. POTASSIUM [Concomitant]
     Dosage: 20 MG, BID
     Route: 048
  15. PREDNISONE [Concomitant]
     Dosage: 10 MG, QD
     Route: 048
  16. CARAFATE [Concomitant]
     Dosage: 0.2 MG, BID
     Route: 048
  17. BACTRIM DS [Concomitant]
     Indication: PROPHYLAXIS
     Dosage: 1 TABLET 3 PER WEEK MWF
     Route: 048
  18. MICARDIS [Concomitant]
     Dosage: 20 MG, QD
     Route: 048
  19. TYLENOL [Concomitant]
     Dosage: UNK, PRN
  20. PERCOCET [Concomitant]
     Dosage: UNK, PRN
  21. ZYRTEC [Concomitant]
     Dosage: 10 MG, QD
     Route: 048
  22. FLEXERIL [Concomitant]
     Dosage: 10 MG, PRN TID
     Route: 048
  23. GUAIFENESIN [Concomitant]
     Dosage: UNK, PRN
  24. ZOFRAN [Concomitant]
     Dosage: UNK, PRN
  25. SOLU-CORTEF [Concomitant]
     Dosage: 100 MG, TID
  26. MICONAZOLE [Concomitant]
     Dosage: UNK
     Route: 061
  27. MICONAZOLE [Concomitant]
     Route: 061
  28. FISH OIL [Concomitant]
     Dosage: UNK, PRN

REACTIONS (8)
  - Multi-organ failure [Fatal]
  - Cholelithiasis [Unknown]
  - Respiratory failure [Unknown]
  - Renal failure [Unknown]
  - Oedema [Unknown]
  - Activities of daily living impaired [Unknown]
  - Quality of life decreased [Unknown]
  - Malaise [Unknown]
